FAERS Safety Report 8901626 (Version 1)
Quarter: 2012Q4

REPORT INFORMATION
  Report Type: Spontaneous
  Country: US (occurrence: None)
  Receive Date: 20121108
  Receipt Date: 20121108
  Transmission Date: 20130627
  Serious: Yes (Hospitalization)
  Sender: FDA-Public Use
  Company Number: None

PATIENT
  Age: 72 Year
  Sex: Female
  Weight: 62.7 kg

DRUGS (1)
  1. METHOTREXATE [Suspect]

REACTIONS (6)
  - Pyrexia [None]
  - Pruritus [None]
  - Stomatitis [None]
  - Pharyngeal disorder [None]
  - Swelling [None]
  - Ulcer [None]
